FAERS Safety Report 8232031-8 (Version None)
Quarter: 2012Q1

REPORT INFORMATION
  Report Type: 
  Country: None (occurrence: None)
  Receive Date: 20120321
  Receipt Date: 20120307
  Transmission Date: 20120608
  Serious: Yes (Disabling)
  Sender: FDA-Public Use
  Company Number: GER/IND/12/0023439

PATIENT
  Age: 49 Year
  Sex: Male

DRUGS (1)
  1. LEVOFLOXACIN [Suspect]
     Indication: SINUSITIS
     Dosage: 500 MG, ORAL
     Route: 048

REACTIONS (13)
  - OPTIC NEURITIS [None]
  - DIZZINESS [None]
  - SCOTOMA [None]
  - PAPILLITIS [None]
  - RETINAL VASCULAR DISORDER [None]
  - RESPIRATORY DISTRESS [None]
  - CONFUSIONAL STATE [None]
  - BLINDNESS UNILATERAL [None]
  - EYE PAIN [None]
  - PAIN [None]
  - COLOUR BLINDNESS ACQUIRED [None]
  - PUPILLARY REFLEX IMPAIRED [None]
  - SPLINTER HAEMORRHAGES [None]
